FAERS Safety Report 15590287 (Version 2)
Quarter: 2018Q4

REPORT INFORMATION
  Report Type: Spontaneous
  Country: ES (occurrence: ES)
  Receive Date: 20181106
  Receipt Date: 20181109
  Transmission Date: 20190205
  Serious: Yes (Hospitalization)
  Sender: FDA-Public Use
  Company Number: ES-JNJFOC-20181044240

PATIENT
  Age: 34 Year
  Sex: Male
  Weight: 67 kg

DRUGS (2)
  1. INFLIXIMAB, RECOMBINANT [Suspect]
     Active Substance: INFLIXIMAB
     Indication: CROHN^S DISEASE
     Route: 042
     Dates: start: 201507, end: 20160615
  2. PENTASA [Concomitant]
     Active Substance: MESALAMINE
     Route: 048
     Dates: start: 200907

REACTIONS (3)
  - Product use issue [Unknown]
  - Off label use [Unknown]
  - Testicular seminoma (pure) stage I [Recovered/Resolved]

NARRATIVE: CASE EVENT DATE: 201507
